FAERS Safety Report 10982960 (Version 1)
Quarter: 2015Q2

REPORT INFORMATION
  Report Type: Spontaneous
  Country: US (occurrence: None)
  Receive Date: 20150401
  Receipt Date: 20150401
  Transmission Date: 20150821
  Serious: Yes (Hospitalization)
  Sender: FDA-Public Use
  Company Number: 2015030071

PATIENT
  Age: 76 Year
  Sex: Male
  Weight: 80.74 kg

DRUGS (10)
  1. GLUCOTROL [Concomitant]
     Active Substance: GLIPIZIDE
  2. MYRBETRIQ [Concomitant]
     Active Substance: MIRABEGRON
  3. BABY ASPIRIN (ACETYLSALICYLIC ACID) [Concomitant]
     Active Substance: ASPIRIN
  4. LOFIBRA [Concomitant]
     Active Substance: FENOFIBRATE
  5. VIAGRA [Concomitant]
     Active Substance: SILDENAFIL CITRATE
  6. MUSE [Suspect]
     Active Substance: ALPROSTADIL
     Indication: ERECTILE DYSFUNCTION
     Route: 066
     Dates: start: 2012
  7. JANUVIA [Concomitant]
     Active Substance: SITAGLIPTIN PHOSPHATE
  8. LOVAZA (OMEGA-3-ACID ETHYL ESTERS) [Concomitant]
  9. INSULIN [Concomitant]
     Active Substance: INSULIN NOS
  10. ATENOLOL. [Concomitant]
     Active Substance: ATENOLOL

REACTIONS (5)
  - Wrong technique in drug usage process [None]
  - Penile haemorrhage [None]
  - Enzyme level increased [None]
  - Urethral injury [None]
  - Dyspnoea [None]

NARRATIVE: CASE EVENT DATE: 201503
